FAERS Safety Report 12625180 (Version 2)
Quarter: 2017Q1

REPORT INFORMATION
  Report Type: Report from Study
  Country: US (occurrence: US)
  Receive Date: 20160805
  Receipt Date: 20170301
  Transmission Date: 20170428
  Serious: Yes (Hospitalization, Other)
  Sender: FDA-Public Use
  Company Number: PHEH2016US019397

PATIENT
  Sex: Female

DRUGS (1)
  1. TAFINLAR [Suspect]
     Active Substance: DABRAFENIB MESYLATE
     Indication: THYROID CANCER
     Route: 065

REACTIONS (4)
  - Dehydration [Unknown]
  - Malignant neoplasm progression [Unknown]
  - Blood electrolytes decreased [Unknown]
  - Product use issue [Unknown]
